APPROVED DRUG PRODUCT: SIMVASTATIN
Active Ingredient: SIMVASTATIN
Strength: 5MG
Dosage Form/Route: TABLET;ORAL
Application: A077752 | Product #005 | TE Code: AB
Applicant: RISING PHARMA HOLDINGS INC
Approved: Jan 23, 2008 | RLD: No | RS: No | Type: RX